FAERS Safety Report 5117096-4 (Version None)
Quarter: 2006Q3

REPORT INFORMATION
  Report Type: 
  Country: None (occurrence: None)
  Receive Date: 20060925
  Receipt Date: 20060912
  Transmission Date: 20061208
  Serious: Yes (Hospitalization)
  Sender: FDA-Public Use
  Company Number: 2006110928

PATIENT
  Age: 42 Year
  Sex: Male

DRUGS (6)
  1. INSPRA [Suspect]
     Indication: CARDIAC FAILURE
     Dosage: 25 MG (DAILY), ORAL; 3 WEEKS AGO
     Route: 048
  2. CARVEDILOL [Concomitant]
  3. MARCUMAR [Concomitant]
  4. NITROGLYCERIN [Concomitant]
  5. DIGITOXIN TAB [Concomitant]
  6. RAMIPRIL [Concomitant]

REACTIONS (3)
  - BLOOD GLUCOSE INCREASED [None]
  - HYPERHIDROSIS [None]
  - VISUAL DISTURBANCE [None]
